FAERS Safety Report 5633568-8 (Version None)
Quarter: 2008Q1

REPORT INFORMATION
  Report Type: 
  Country: None (occurrence: None)
  Receive Date: 20080221
  Receipt Date: 20080129
  Transmission Date: 20080703
  Serious: Yes (Disabling, Other)
  Sender: FDA-Public Use
  Company Number: PHEH2008US00867

PATIENT
  Age: 63 Year
  Sex: Male

DRUGS (1)
  1. PAMIDRONATE DISODIUM [Suspect]
     Indication: HYPERGAMMAGLOBULINAEMIA BENIGN MONOCLONAL
     Dosage: 90 MG, QMO
     Dates: start: 20010201, end: 20070716

REACTIONS (6)
  - BONE DISORDER [None]
  - DENTAL IMPLANTATION [None]
  - GINGIVAL EROSION [None]
  - HIP SURGERY [None]
  - OSTEONECROSIS [None]
  - RESORPTION BONE INCREASED [None]
